FAERS Safety Report 8358364-2 (Version None)
Quarter: 2012Q2

REPORT INFORMATION
  Report Type: 
  Country: None (occurrence: None)
  Receive Date: 20120514
  Receipt Date: 20110504
  Transmission Date: 20120825
  Serious: Yes (Other)
  Sender: FDA-Public Use
  Company Number: US-ALEXION-A201100650

PATIENT
  Sex: Female

DRUGS (9)
  1. BENADRYL [Suspect]
     Dosage: UNK
  2. EXCEDRIN (MIGRAINE) [Concomitant]
     Dosage: UNK
  3. SOLIRIS [Suspect]
     Indication: PAROXYSMAL NOCTURNAL HAEMOGLOBINURIA
     Dosage: 600 MG QWUNK
     Route: 042
     Dates: start: 20101001
  4. SOLIRIS [Suspect]
     Dosage: 900 MG Q2W
  5. CLARITIN [Concomitant]
     Dosage: UNK
  6. FOLIC ACID [Concomitant]
     Dosage: UNK
  7. CRANBERRY [Concomitant]
     Dosage: UNK
  8. IRON DEXTRAN [Concomitant]
     Dosage: UNK
  9. TYLENOL (CAPLET) [Concomitant]
     Dosage: UNK

REACTIONS (1)
  - MALIGNANT MELANOMA [None]
